FAERS Safety Report 7160659-5 (Version None)
Quarter: 2010Q4

REPORT INFORMATION
  Report Type: 
  Country: None (occurrence: None)
  Receive Date: 20101214
  Receipt Date: 20091211
  Transmission Date: 20110411
  Serious: Yes (Hospitalization)
  Sender: FDA-Public Use
  Company Number: US-AMGEN-QUU380005

PATIENT

DRUGS (1)
  1. ENBREL [Suspect]
     Indication: ANKYLOSING SPONDYLITIS
     Dosage: 50 MG, QWK
     Route: 058
     Dates: start: 20050214

REACTIONS (6)
  - DEEP VEIN THROMBOSIS [None]
  - FLUSHING [None]
  - PRURITUS [None]
  - PULMONARY EMBOLISM [None]
  - RASH [None]
  - VISION BLURRED [None]
